FAERS Safety Report 21805581 (Version 1)
Quarter: 2023Q1

REPORT INFORMATION
  Report Type: Spontaneous
  Country: SI (occurrence: SI)
  Receive Date: 20230102
  Receipt Date: 20230102
  Transmission Date: 20230417
  Serious: Yes (Other)
  Sender: FDA-Public Use
  Company Number: None

PATIENT
  Age: 55 Year
  Sex: Male

DRUGS (7)
  1. IRINOTECAN [Suspect]
     Active Substance: IRINOTECAN
     Indication: Colorectal cancer
     Dosage: STRENGTH: 20 MG/ML
     Dates: start: 20220211, end: 20220211
  2. ADALAT [Concomitant]
     Active Substance: NIFEDIPINE
     Dosage: STRENGTH: 30 MG,  OROS
  3. AFLIBERCEPT [Concomitant]
     Active Substance: AFLIBERCEPT
  4. CAPECITABINE [Concomitant]
     Active Substance: CAPECITABINE
  5. GRANISETRON [Concomitant]
     Active Substance: GRANISETRON
     Dosage: AS NECESSARY
  6. PERINDOPRIL [Concomitant]
     Active Substance: PERINDOPRIL
     Dosage: STRENGTH: 4 MG
  7. REGLAN [Concomitant]
     Active Substance: METOCLOPRAMIDE HYDROCHLORIDE
     Dosage: AS NECESSARY

REACTIONS (2)
  - Infusion related reaction [Recovered/Resolved]
  - Cholinergic syndrome [Recovered/Resolved]

NARRATIVE: CASE EVENT DATE: 20220211
